FAERS Safety Report 15244424 (Version 1)
Quarter: 2018Q3

REPORT INFORMATION
  Report Type: Spontaneous
  Country: US (occurrence: US)
  Receive Date: 20180806
  Receipt Date: 20180806
  Transmission Date: 20181010
  Serious: Yes (Hospitalization)
  Sender: FDA-Public Use
  Company Number: US-JNJFOC-20180803309

PATIENT
  Age: 57 Year
  Sex: Male

DRUGS (2)
  1. INVOKANA [Suspect]
     Active Substance: CANAGLIFLOZIN
     Indication: TYPE 2 DIABETES MELLITUS
     Route: 048
  2. METFORMIN [Suspect]
     Active Substance: METFORMIN HYDROCHLORIDE
     Indication: PRODUCT USED FOR UNKNOWN INDICATION
     Route: 065
     Dates: end: 201312

REACTIONS (6)
  - Renal failure [Unknown]
  - Gangrene [Unknown]
  - Osteomyelitis chronic [Unknown]
  - Diabetic ulcer [Unknown]
  - Toe amputation [Recovering/Resolving]
  - Leg amputation [Unknown]

NARRATIVE: CASE EVENT DATE: 201312
